FAERS Safety Report 20926339 (Version 10)
Quarter: 2022Q4

REPORT INFORMATION
  Report Type: Spontaneous
  Country: SE (occurrence: SE)
  Receive Date: 20220607
  Receipt Date: 20221206
  Transmission Date: 20230113
  Serious: Yes (Hospitalization, Other)
  Sender: FDA-Public Use
  Company Number: SE-SA-2022SA117612

PATIENT
  Age: 75 Year
  Sex: Male
  Weight: 95.6 kg

DRUGS (24)
  1. IMBRUVICA [Suspect]
     Active Substance: IBRUTINIB
     Indication: Product used for unknown indication
     Dosage: FIRST DOSE LATENCY  802 DAYS AND  LAST  DOSE LATENCY 664 DAYS
     Route: 048
     Dates: start: 20200109, end: 20200526
  2. DESLORATADINE [Concomitant]
     Active Substance: DESLORATADINE
     Indication: Product used for unknown indication
     Dosage: 100 MG
     Route: 048
     Dates: start: 20220314, end: 20220321
  3. VENETOCLAX [Suspect]
     Active Substance: VENETOCLAX
     Indication: Product used for unknown indication
     Route: 048
     Dates: start: 20200929, end: 20210607
  4. ZOPIKLON PILUM [Concomitant]
     Indication: Product used for unknown indication
     Dates: start: 20211119
  5. PREDNISOLONE [Suspect]
     Active Substance: PREDNISOLONE
     Indication: Mantle cell lymphoma stage IV
     Route: 065
     Dates: start: 20220129
  6. PREDNISONE [Suspect]
     Active Substance: PREDNISONE
     Indication: Mantle cell lymphoma stage IV
     Dosage: FIRST DOSE LATENCY 51 DAYS
     Route: 065
  7. PREDNISONE [Suspect]
     Active Substance: PREDNISONE
     Indication: Mantle cell lymphoma stage IV
     Dosage: FIRST DOSE LATENCY 51 DAYS
     Route: 065
     Dates: start: 20220129
  8. ZOPICLONE ORION [Concomitant]
     Indication: Product used for unknown indication
     Dosage: FIRST DOSE LATENCY 122 DAYS
     Route: 065
     Dates: start: 20211119
  9. PANTOPRAZOLE SODIUM [Concomitant]
     Active Substance: PANTOPRAZOLE SODIUM
     Indication: Product used for unknown indication
     Dosage: FIRST DOSE LATENCY  47 DAYS
     Route: 065
     Dates: start: 20220202
  10. DELTISON [PREDNISONE] [Concomitant]
     Indication: Product used for unknown indication
     Dosage: 75 MG
     Dates: start: 20220314, end: 20220324
  11. DELTISON [PREDNISONE] [Concomitant]
     Indication: Product used for unknown indication
     Dosage: 100 MG FIRST DOSE LATENCY  7 DAYS
  12. LEVOTHYROXINE SODIUM [Concomitant]
     Active Substance: LEVOTHYROXINE SODIUM
     Indication: Product used for unknown indication
     Dosage: FIRST DOSE LATENCY 4 YEARS
     Route: 065
     Dates: start: 20171003
  13. ELIQUIS [Concomitant]
     Active Substance: APIXABAN
     Indication: Product used for unknown indication
     Dosage: FIRST DOSE LATENCY  35 DAYS
     Dates: start: 20220214
  14. ENALAPRIL [Concomitant]
     Active Substance: ENALAPRIL
     Indication: Product used for unknown indication
     Dosage: FIRST DOSE LATENCY 4 DAYS
     Route: 065
     Dates: start: 20180503
  15. FLUCLOXACILLIN [Concomitant]
     Active Substance: FLUCLOXACILLIN
     Indication: Product used for unknown indication
     Route: 065
     Dates: start: 20220324, end: 20220403
  16. DESLORATADINE TEVA [Concomitant]
     Indication: Product used for unknown indication
     Dosage: 100 MG
     Route: 065
     Dates: start: 20220314, end: 20220321
  17. NYSTATIN ORIFARM [Concomitant]
     Indication: Product used for unknown indication
     Route: 065
     Dates: start: 20220328
  18. ZOPICLONE [Concomitant]
     Active Substance: ZOPICLONE
     Indication: Product used for unknown indication
     Dates: start: 20211119
  19. PANTOPRAZOLE SODIUM [Concomitant]
     Active Substance: PANTOPRAZOLE SODIUM
     Indication: Product used for unknown indication
     Dates: start: 20220202
  20. PARACETAMOL NET [Concomitant]
     Indication: Product used for unknown indication
     Dosage: 1000 MG, FIRST DOSE LATENCY 7 DAYS
     Route: 048
     Dates: start: 20220314, end: 20220321
  21. OXYCODONE HYDROCHLORIDE [Concomitant]
     Active Substance: OXYCODONE HYDROCHLORIDE
     Indication: Product used for unknown indication
     Dosage: FIRST DOSE LATENCY 90 DAYS
     Dates: start: 20211221
  22. SULFAMETHOXAZOLE\TRIMETHOPRIM [Concomitant]
     Active Substance: SULFAMETHOXAZOLE\TRIMETHOPRIM
     Indication: Product used for unknown indication
     Dosage: FIRST DOSE LATENCY 815 DAYS
     Dates: start: 20191227
  23. ALLOPURINOL [Concomitant]
     Active Substance: ALLOPURINOL
     Indication: Product used for unknown indication
     Dosage: FIRST DOSE LATENCY  34 DAYS
     Route: 065
     Dates: start: 20220215
  24. ATORVASTATIN EBB [Concomitant]
     Indication: Product used for unknown indication
     Dosage: FIRST DOSE LATENCY 4 YEARS
     Route: 065
     Dates: start: 20171003

REACTIONS (1)
  - Diabetes mellitus [Not Recovered/Not Resolved]

NARRATIVE: CASE EVENT DATE: 20220321
